FAERS Safety Report 5124037-2 (Version None)
Quarter: 2006Q4

REPORT INFORMATION
  Report Type: 
  Country: None (occurrence: None)
  Receive Date: 20061010
  Receipt Date: 20060919
  Transmission Date: 20070319
  Serious: Yes (Life-Threatening)
  Sender: FDA-Public Use
  Company Number: DE-BAYER-200611239BVD

PATIENT
  Age: 69 Year
  Sex: Male
  Weight: 90 kg

DRUGS (9)
  1. APROTININ [Suspect]
     Route: 042
     Dates: start: 20060914, end: 20060914
  2. TAZOBAC [Concomitant]
     Route: 042
     Dates: start: 20060919
  3. CIPROFLOXACIN [Concomitant]
     Route: 042
     Dates: start: 20060919
  4. ACETYLCYSTEINE [Concomitant]
     Route: 042
     Dates: start: 20060919
  5. ERYTHROMYCIN [Concomitant]
     Route: 042
     Dates: start: 20060919
  6. FUROSEMIDE [Concomitant]
     Route: 042
     Dates: start: 20060919
  7. METOPROLOL TARTRATE [Concomitant]
     Route: 048
  8. NORVASC [Concomitant]
     Route: 048
  9. AUGMENTIN '125' [Concomitant]
     Route: 048
     Dates: start: 20060914, end: 20060915

REACTIONS (3)
  - POST PROCEDURAL COMPLICATION [None]
  - PULMONARY OEDEMA [None]
  - RENAL FAILURE [None]
